FAERS Safety Report 6020692-3 (Version None)
Quarter: 2008Q4

REPORT INFORMATION
  Report Type: 
  Country: None (occurrence: None)
  Receive Date: 20081223
  Receipt Date: 20081223
  Transmission Date: 20090506
  Serious: No
  Sender: FDA-Public Use
  Company Number: None

PATIENT
  Sex: Female
  Weight: 44.4525 kg

DRUGS (1)
  1. DEXMETHYLPHENIDATE HCL [Suspect]
     Dosage: 10MG 1Q AM 1 1/2 Q PM PO
     Route: 048
     Dates: start: 20071214, end: 20081215

REACTIONS (2)
  - DRUG INEFFECTIVE [None]
  - HEADACHE [None]
